FAERS Safety Report 9464526 (Version 6)
Quarter: 2013Q4

REPORT INFORMATION
  Report Type: Report from Study
  Country: US (occurrence: US)
  Receive Date: 20130819
  Receipt Date: 20131212
  Transmission Date: 20140711
  Serious: Yes (Hospitalization)
  Sender: FDA-Public Use
  Company Number: US-JNJFOC-20130806399

PATIENT
  Age: 16 Year
  Sex: Male
  Weight: 64.2 kg

DRUGS (7)
  1. REMICADE [Suspect]
     Indication: INFLAMMATORY BOWEL DISEASE
     Route: 042
     Dates: start: 20080204
  2. 5-ASA [Concomitant]
     Route: 048
  3. DEPAKOTE [Concomitant]
     Route: 065
  4. REGLAN [Concomitant]
     Route: 065
  5. CELEBREX [Concomitant]
     Route: 065
  6. PROZAC [Concomitant]
     Route: 065
  7. MIRALAX [Concomitant]
     Route: 065

REACTIONS (2)
  - Dehydration [Recovered/Resolved]
  - Gastroenteritis [Recovered/Resolved]
